FAERS Safety Report 21934750 (Version 2)
Quarter: 2023Q1

REPORT INFORMATION
  Report Type: Spontaneous
  Country: ES (occurrence: ES)
  Receive Date: 20230201
  Receipt Date: 20230228
  Transmission Date: 20230417
  Serious: Yes (Other)
  Sender: FDA-Public Use
  Company Number: ES-PFIZER INC-202201177484

PATIENT
  Age: 30 Month
  Sex: Female

DRUGS (60)
  1. LEVETIRACETAM [Suspect]
     Active Substance: LEVETIRACETAM
     Indication: Tonic convulsion
     Dosage: UNK
     Route: 065
  2. LEVETIRACETAM [Suspect]
     Active Substance: LEVETIRACETAM
     Indication: Epileptic encephalopathy
  3. LEVETIRACETAM [Suspect]
     Active Substance: LEVETIRACETAM
     Indication: Myoclonic epilepsy
  4. LEVETIRACETAM [Suspect]
     Active Substance: LEVETIRACETAM
     Indication: Partial seizures
  5. LEVETIRACETAM [Suspect]
     Active Substance: LEVETIRACETAM
     Indication: Generalised tonic-clonic seizure
  6. BIOTIN [Suspect]
     Active Substance: BIOTIN
     Indication: Generalised tonic-clonic seizure
     Dosage: UNK
     Route: 065
  7. BIOTIN [Suspect]
     Active Substance: BIOTIN
     Indication: Tonic convulsion
  8. BIOTIN [Suspect]
     Active Substance: BIOTIN
     Indication: Myoclonic epilepsy
  9. BIOTIN [Suspect]
     Active Substance: BIOTIN
     Indication: Partial seizures
  10. BIOTIN [Suspect]
     Active Substance: BIOTIN
     Indication: Epileptic encephalopathy
  11. VALPROIC ACID [Suspect]
     Active Substance: VALPROIC ACID
     Indication: Partial seizures
     Dosage: UNK
     Route: 065
  12. VALPROIC ACID [Suspect]
     Active Substance: VALPROIC ACID
     Indication: Tonic convulsion
  13. VALPROIC ACID [Suspect]
     Active Substance: VALPROIC ACID
     Indication: Epileptic encephalopathy
  14. VALPROIC ACID [Suspect]
     Active Substance: VALPROIC ACID
     Indication: Generalised tonic-clonic seizure
  15. VALPROIC ACID [Suspect]
     Active Substance: VALPROIC ACID
     Indication: Myoclonic epilepsy
  16. CORTICOTROPIN [Suspect]
     Active Substance: CORTICOTROPIN
     Indication: Myoclonic epilepsy
     Dosage: UNK
     Route: 030
  17. CORTICOTROPIN [Suspect]
     Active Substance: CORTICOTROPIN
     Indication: Partial seizures
  18. CORTICOTROPIN [Suspect]
     Active Substance: CORTICOTROPIN
     Indication: Epileptic encephalopathy
  19. CORTICOTROPIN [Suspect]
     Active Substance: CORTICOTROPIN
     Indication: Generalised tonic-clonic seizure
  20. CORTICOTROPIN [Suspect]
     Active Substance: CORTICOTROPIN
     Indication: Tonic convulsion
  21. VIGABATRIN [Suspect]
     Active Substance: VIGABATRIN
     Indication: Generalised tonic-clonic seizure
     Dosage: 140 MILLIGRAM/KILOGRAM, DAILY
     Route: 065
  22. VIGABATRIN [Suspect]
     Active Substance: VIGABATRIN
     Indication: Epileptic encephalopathy
  23. VIGABATRIN [Suspect]
     Active Substance: VIGABATRIN
     Indication: Myoclonic epilepsy
  24. VIGABATRIN [Suspect]
     Active Substance: VIGABATRIN
     Indication: Partial seizures
  25. VIGABATRIN [Suspect]
     Active Substance: VIGABATRIN
     Indication: Tonic convulsion
  26. PHENYTOIN SODIUM [Suspect]
     Active Substance: PHENYTOIN SODIUM
     Indication: Generalised tonic-clonic seizure
     Dosage: UNK
     Route: 065
  27. PHENYTOIN SODIUM [Suspect]
     Active Substance: PHENYTOIN SODIUM
     Indication: Epileptic encephalopathy
  28. PHENYTOIN SODIUM [Suspect]
     Active Substance: PHENYTOIN SODIUM
     Indication: Partial seizures
  29. PHENYTOIN SODIUM [Suspect]
     Active Substance: PHENYTOIN SODIUM
     Indication: Myoclonic epilepsy
  30. PHENYTOIN SODIUM [Suspect]
     Active Substance: PHENYTOIN SODIUM
     Indication: Tonic convulsion
  31. OXCARBAZEPINE [Suspect]
     Active Substance: OXCARBAZEPINE
     Indication: Generalised tonic-clonic seizure
     Dosage: 20 MILLIGRAM/KILOGRAM, DAILY
     Route: 065
  32. OXCARBAZEPINE [Suspect]
     Active Substance: OXCARBAZEPINE
     Indication: Partial seizures
  33. OXCARBAZEPINE [Suspect]
     Active Substance: OXCARBAZEPINE
     Indication: Epileptic encephalopathy
  34. OXCARBAZEPINE [Suspect]
     Active Substance: OXCARBAZEPINE
     Indication: Tonic convulsion
  35. OXCARBAZEPINE [Suspect]
     Active Substance: OXCARBAZEPINE
     Indication: Myoclonic epilepsy
  36. LEUCOVORIN [Suspect]
     Active Substance: LEUCOVORIN
     Indication: Tonic convulsion
     Dosage: 20 MILLIGRAM/KILOGRAM, DAILY
     Route: 065
  37. LEUCOVORIN [Suspect]
     Active Substance: LEUCOVORIN
     Indication: Partial seizures
  38. LEUCOVORIN [Suspect]
     Active Substance: LEUCOVORIN
     Indication: Myoclonic epilepsy
  39. LEUCOVORIN [Suspect]
     Active Substance: LEUCOVORIN
     Indication: Epileptic encephalopathy
  40. LEUCOVORIN [Suspect]
     Active Substance: LEUCOVORIN
     Indication: Generalised tonic-clonic seizure
  41. CLONAZEPAM [Suspect]
     Active Substance: CLONAZEPAM
     Indication: Myoclonic epilepsy
     Dosage: 0.04 MILLIGRAM/KILOGRAM
     Route: 065
  42. CLONAZEPAM [Suspect]
     Active Substance: CLONAZEPAM
     Indication: Partial seizures
  43. CLONAZEPAM [Suspect]
     Active Substance: CLONAZEPAM
     Indication: Tonic convulsion
  44. CLONAZEPAM [Suspect]
     Active Substance: CLONAZEPAM
     Indication: Generalised tonic-clonic seizure
  45. CLONAZEPAM [Suspect]
     Active Substance: CLONAZEPAM
     Indication: Epileptic encephalopathy
  46. PYRIDOXINE [Suspect]
     Active Substance: PYRIDOXINE
     Indication: Myoclonic epilepsy
     Dosage: UNK
     Route: 065
  47. PYRIDOXINE [Suspect]
     Active Substance: PYRIDOXINE
     Indication: Generalised tonic-clonic seizure
  48. PYRIDOXINE [Suspect]
     Active Substance: PYRIDOXINE
     Indication: Tonic convulsion
  49. PYRIDOXINE [Suspect]
     Active Substance: PYRIDOXINE
     Indication: Partial seizures
  50. PYRIDOXINE [Suspect]
     Active Substance: PYRIDOXINE
     Indication: Epileptic encephalopathy
  51. TOPIRAMATE [Suspect]
     Active Substance: TOPIRAMATE
     Indication: Myoclonic epilepsy
     Dosage: 3.13 MILLIGRAM/KILOGRAM, DAILY
     Route: 065
  52. TOPIRAMATE [Suspect]
     Active Substance: TOPIRAMATE
     Indication: Tonic convulsion
  53. TOPIRAMATE [Suspect]
     Active Substance: TOPIRAMATE
     Indication: Generalised tonic-clonic seizure
  54. TOPIRAMATE [Suspect]
     Active Substance: TOPIRAMATE
     Indication: Epileptic encephalopathy
  55. TOPIRAMATE [Suspect]
     Active Substance: TOPIRAMATE
     Indication: Partial seizures
  56. ZONISAMIDE [Concomitant]
     Active Substance: ZONISAMIDE
     Indication: Epileptic encephalopathy
     Dosage: 200 MILLIGRAM, DAILY, 100 MG, 2X/DAY
     Route: 065
  57. ZONISAMIDE [Concomitant]
     Active Substance: ZONISAMIDE
     Indication: Generalised tonic-clonic seizure
  58. ZONISAMIDE [Concomitant]
     Active Substance: ZONISAMIDE
     Indication: Partial seizures
  59. ZONISAMIDE [Concomitant]
     Active Substance: ZONISAMIDE
     Indication: Tonic convulsion
  60. ZONISAMIDE [Concomitant]
     Active Substance: ZONISAMIDE
     Indication: Myoclonic epilepsy

REACTIONS (1)
  - Treatment failure [Recovered/Resolved]
